FAERS Safety Report 6206899-0 (Version None)
Quarter: 2009Q2

REPORT INFORMATION
  Report Type: 
  Country: None (occurrence: None)
  Receive Date: 20090528
  Receipt Date: 20090525
  Transmission Date: 20091009
  Serious: Yes (Other)
  Sender: FDA-Public Use
  Company Number: A0766680A

PATIENT
  Sex: Male

DRUGS (5)
  1. KIVEXA [Suspect]
     Indication: HIV INFECTION
     Route: 048
     Dates: start: 20041214, end: 20080731
  2. SUSTIVA [Suspect]
     Indication: HIV INFECTION
     Route: 048
     Dates: start: 20070410
  3. NORVIR [Suspect]
     Indication: HIV INFECTION
     Route: 065
     Dates: start: 20041214, end: 20070410
  4. TELZIR [Suspect]
     Indication: HIV INFECTION
     Route: 065
     Dates: start: 20041214, end: 20060302
  5. REYATAZ [Suspect]
     Indication: HIV INFECTION
     Route: 065
     Dates: start: 20060302, end: 20070410

REACTIONS (4)
  - ANGINA PECTORIS [None]
  - CARDIOVASCULAR DISORDER [None]
  - DYSLIPIDAEMIA [None]
  - MYOCARDIAL INFARCTION [None]
